FAERS Safety Report 21389602 (Version 1)
Quarter: 2022Q3

REPORT INFORMATION
  Report Type: Other
  Country: CN (occurrence: None)
  Receive Date: 20220929
  Receipt Date: 20220929
  Transmission Date: 20221026
  Serious: Yes (Other)
  Sender: FDA-Public Use
  Company Number: CN-ROCHE-3189458

PATIENT
  Age: 13 Year
  Sex: Female

DRUGS (2)
  1. RITUXIMAB [Suspect]
     Active Substance: RITUXIMAB
     Indication: Endocrine ophthalmopathy
     Dosage: FOR A TOTAL OF 2 TIMES.
     Route: 041
  2. METHYLPREDNISOLONE [Suspect]
     Active Substance: METHYLPREDNISOLONE
     Indication: Endocrine ophthalmopathy
     Route: 065

REACTIONS (1)
  - Type 1 diabetes mellitus [Unknown]
